FAERS Safety Report 5719439-7 (Version None)
Quarter: 2008Q2

REPORT INFORMATION
  Report Type: 
  Country: None (occurrence: None)
  Receive Date: 20080428
  Receipt Date: 20080418
  Transmission Date: 20081010
  Serious: Yes (Other)
  Sender: FDA-Public Use
  Company Number: PHHY2008IT06045

PATIENT
  Sex: Female

DRUGS (1)
  1. EXJADE [Suspect]
     Dosage: 30 MG/KG
     Route: 048

REACTIONS (2)
  - BACTERIAL CULTURE POSITIVE [None]
  - YERSINIA INFECTION [None]
